FAERS Safety Report 8247701-5 (Version None)
Quarter: 2012Q1

REPORT INFORMATION
  Report Type: 
  Country: None (occurrence: None)
  Receive Date: 20120330
  Receipt Date: 20120327
  Transmission Date: 20120608
  Serious: Yes (Hospitalization)
  Sender: FDA-Public Use
  Company Number: US-GLAXOSMITHKLINE-A0915685A

PATIENT
  Age: 67 Year
  Sex: Male
  Weight: 187.3 kg

DRUGS (11)
  1. ALBUTEROL [Concomitant]
  2. GLUCOTROL [Concomitant]
  3. ATROVENT [Concomitant]
  4. INSULIN [Concomitant]
  5. PREDNISONE TAB [Concomitant]
  6. LOTENSIN [Concomitant]
  7. NEXIUM [Concomitant]
  8. PRAVACHOL [Concomitant]
  9. IMITREX [Concomitant]
  10. AVANDIA [Suspect]
     Indication: DIABETES MELLITUS
     Dosage: 8MG PER DAY
     Route: 048
     Dates: start: 20020101, end: 20071001
  11. METFORMIN HCL [Concomitant]

REACTIONS (5)
  - VENTRICULAR ARRHYTHMIA [None]
  - ARRHYTHMIA [None]
  - HYPERLIPIDAEMIA [None]
  - CARDIAC FAILURE CONGESTIVE [None]
  - HYPERTENSION [None]
